FAERS Safety Report 4957105-6 (Version None)
Quarter: 2006Q1

REPORT INFORMATION
  Report Type: 
  Country: None (occurrence: None)
  Receive Date: 20060323
  Receipt Date: 20060315
  Transmission Date: 20060701
  Serious: Yes (Other)
  Sender: FDA-Public Use
  Company Number: 2006037351

PATIENT
  Age: 49 Year
  Sex: Male
  Weight: 102.0593 kg

DRUGS (14)
  1. LIPITOR [Suspect]
     Indication: BLOOD CHOLESTEROL INCREASED
     Dosage: 10 MG (10 MG, 1 IN 1 D)
  2. NORVASC [Suspect]
     Indication: HYPERTENSION
     Dates: start: 20050101
  3. ECOTRIN (ACETYLSALICYLIC ACID) [Concomitant]
  4. ALTACE [Concomitant]
  5. PREDNISONE [Concomitant]
  6. DEXAMETHASONE TAB [Concomitant]
  7. WARFARIN [Concomitant]
  8. THALIDOMIDE [Concomitant]
  9. ZOMETA [Concomitant]
  10. MULTIVITAMIN [Concomitant]
  11. CALCIUM GLUCONATE [Concomitant]
  12. VITAMIN D [Concomitant]
  13. ALL OTHER THERAPEUTIC PRODUCTS [Concomitant]
  14. HYDROCODONE [Concomitant]

REACTIONS (6)
  - ABDOMINAL PAIN [None]
  - DYSSTASIA [None]
  - HERPES ZOSTER [None]
  - IMMUNE SYSTEM DISORDER [None]
  - MULTIPLE MYELOMA [None]
  - MYALGIA [None]
